FAERS Safety Report 11137928 (Version 1)
Quarter: 2015Q2

REPORT INFORMATION
  Report Type: Spontaneous
  Country: US (occurrence: US)
  Receive Date: 20150526
  Receipt Date: 20150526
  Transmission Date: 20150821
  Serious: No
  Sender: FDA-Public Use
  Company Number: US-MALLINCKRODT-T201404568

PATIENT
  Sex: Male

DRUGS (2)
  1. H.P. ACTHAR [Suspect]
     Active Substance: CORTICOTROPIN
     Indication: FOCAL SEGMENTAL GLOMERULOSCLEROSIS
     Dosage: 0.08 ML BIWEEKLY
     Route: 058
     Dates: start: 20140212
  2. H.P. ACTHAR [Suspect]
     Active Substance: CORTICOTROPIN
     Dosage: 0.04 ML THREE TIMES WEEKLY
     Route: 058

REACTIONS (5)
  - Blood glucose fluctuation [Unknown]
  - Injection site haemorrhage [Recovered/Resolved]
  - Energy increased [Unknown]
  - Incorrect route of drug administration [Unknown]
  - Psychomotor hyperactivity [Unknown]
